FAERS Safety Report 14655851 (Version 5)
Quarter: 2019Q4

REPORT INFORMATION
  Report Type: Spontaneous
  Country: US (occurrence: US)
  Receive Date: 20180319
  Receipt Date: 20191031
  Transmission Date: 20200122
  Serious: No
  Sender: FDA-Public Use
  Company Number: US-BIOGEN-2018BI00543608

PATIENT
  Sex: Male

DRUGS (1)
  1. TECFIDERA [Suspect]
     Active Substance: DIMETHYL FUMARATE
     Indication: MULTIPLE SCLEROSIS
     Dosage: MAINTENANCE DOSE
     Route: 050
     Dates: start: 20171019

REACTIONS (6)
  - Hot flush [Unknown]
  - Flushing [Unknown]
  - Visual impairment [Unknown]
  - Depression [Unknown]
  - Gait disturbance [Unknown]
  - Balance disorder [Unknown]
